FAERS Safety Report 21126434 (Version 2)
Quarter: 2022Q3

REPORT INFORMATION
  Report Type: Spontaneous
  Country: FR (occurrence: FR)
  Receive Date: 20220725
  Receipt Date: 20220812
  Transmission Date: 20221026
  Serious: Yes (Other)
  Sender: FDA-Public Use
  Company Number: FR-OTSUKA-2022_037349

PATIENT
  Age: 32 Year
  Sex: Male

DRUGS (2)
  1. ABILIFY MAINTENA [Suspect]
     Active Substance: ARIPIPRAZOLE
     Indication: Schizoaffective disorder
     Dosage: 400 MG, QM
     Route: 065
  2. VALPROMIDE [Concomitant]
     Active Substance: VALPROMIDE
     Indication: Product used for unknown indication
     Dosage: 300 MG, BID (1 IN THE MORNING AND 1 IN THE EVENING)
     Route: 065

REACTIONS (3)
  - Drug level increased [Not Recovered/Not Resolved]
  - Sedation [Not Recovered/Not Resolved]
  - Product use in unapproved indication [Unknown]
